FAERS Safety Report 7598409-0 (Version None)
Quarter: 2011Q3

REPORT INFORMATION
  Report Type: 
  Country: None (occurrence: None)
  Receive Date: 20110708
  Receipt Date: 20110623
  Transmission Date: 20111222
  Serious: Yes (Other)
  Sender: FDA-Public Use
  Company Number: IN-GENENTECH-315482

PATIENT
  Age: 28 Year
  Sex: Female

DRUGS (1)
  1. LUCENTIS [Suspect]
     Indication: CHOROIDAL NEOVASCULARISATION
     Dosage: 3 UNK, 1/MONTH
     Route: 047

REACTIONS (4)
  - VISUAL ACUITY REDUCED [None]
  - MATERNAL EXPOSURE DURING PREGNANCY [None]
  - CHORIORETINAL DISORDER [None]
  - ABORTION SPONTANEOUS [None]
